FAERS Safety Report 16287453 (Version 2)
Quarter: 2019Q2

REPORT INFORMATION
  Report Type: Spontaneous
  Country: US (occurrence: US)
  Receive Date: 20190508
  Receipt Date: 20190520
  Transmission Date: 20190711
  Serious: Yes (Hospitalization)
  Sender: FDA-Public Use
  Company Number: US-VERTEX PHARMACEUTICALS-2019-004043

PATIENT
  Age: 49 Year
  Sex: Female

DRUGS (2)
  1. PULMOZYME [Concomitant]
     Active Substance: DORNASE ALFA
     Dosage: 2.5 MG, QD
     Route: 055
  2. SYMDEKO [Suspect]
     Active Substance: IVACAFTOR\TEZACAFTOR
     Indication: CYSTIC FIBROSIS
     Dosage: 100MG TEZACAFTOR/150MG IVACAFTOR; 150MG IVACAFTOR, BID
     Route: 048
     Dates: start: 20190403

REACTIONS (3)
  - Chest discomfort [Not Recovered/Not Resolved]
  - Productive cough [Not Recovered/Not Resolved]
  - Parainfluenzae virus infection [Recovering/Resolving]

NARRATIVE: CASE EVENT DATE: 2019
